FAERS Safety Report 5027265-X (Version None)
Quarter: 2006Q2

REPORT INFORMATION
  Report Type: 
  Country: None (occurrence: None)
  Receive Date: 20060615
  Receipt Date: 20060529
  Transmission Date: 20061013
  Serious: Yes (Hospitalization)
  Sender: FDA-Public Use
  Company Number: FR-AMGEN-US181601

PATIENT
  Age: 32 Year
  Sex: Male

DRUGS (1)
  1. ENBREL [Suspect]
     Indication: DRUG USE FOR UNKNOWN INDICATION
     Dosage: 2 DOSES TOTAL WEEKLY
     Route: 058
     Dates: start: 20050701, end: 20060101

REACTIONS (4)
  - ASTHENIA [None]
  - DIPLOPIA [None]
  - HEADACHE [None]
  - POLYNEUROPATHY [None]
